FAERS Safety Report 4282751-5 (Version None)
Quarter: 2004Q1

REPORT INFORMATION
  Report Type: 
  Country: None (occurrence: None)
  Receive Date: 20040130
  Receipt Date: 20030422
  Transmission Date: 20041129
  Serious: No
  Sender: FDA-Public Use
  Company Number: US-BRISTOL-MYERS SQUIBB COMPANY-12250163

PATIENT
  Age: 34 Year
  Sex: Male
  Weight: 82 kg

DRUGS (1)
  1. SERZONE [Suspect]
     Indication: DEPRESSION
     Dosage: BEGAN SERZONE 600 MG DAILY ABOUT 7-8 YRS AGO, NOW TAKES 400 MG DAILY
     Route: 048

REACTIONS (2)
  - PAIN [None]
  - PARAESTHESIA [None]
